FAERS Safety Report 9026122 (Version 1)
Quarter: 2012Q4

REPORT INFORMATION
  Report Type: Spontaneous
  Country: US (occurrence: None)
  Receive Date: 20121217
  Receipt Date: 20121217
  Transmission Date: 20130627
  Serious: Yes (Other)
  Sender: FDA-Public Use
  Company Number: None

PATIENT
  Age: 43 Year
  Sex: Male
  Weight: 170.1 kg

DRUGS (1)
  1. ENOXAPARIN [Suspect]
     Indication: DVT PROPHYLAXIS
     Dosage: 40mg;  Twice/day;  057
     Dates: start: 20121115, end: 20121118

REACTIONS (2)
  - Deep vein thrombosis [None]
  - Vein disorder [None]
